FAERS Safety Report 18015631 (Version 4)
Quarter: 2020Q3

REPORT INFORMATION
  Report Type: Spontaneous
  Country: CA (occurrence: CA)
  Receive Date: 20200713
  Receipt Date: 20200817
  Transmission Date: 20201103
  Serious: Yes (Other)
  Sender: FDA-Public Use
  Company Number: CA-PFIZER INC-2017033570

PATIENT
  Age: 49 Year
  Sex: Female

DRUGS (5)
  1. NAPROXEN. [Concomitant]
     Active Substance: NAPROXEN
     Dosage: 500 MG, 2X/DAY
  2. XELJANZ [Suspect]
     Active Substance: TOFACITINIB CITRATE
     Indication: RHEUMATOID ARTHRITIS
     Dosage: 5 MG, 2X/DAY
     Route: 048
     Dates: start: 20170112, end: 202006
  3. LYRICA [Concomitant]
     Active Substance: PREGABALIN
     Indication: PAIN
     Dosage: 50 MG, 1X/DAY, AT BEDTIME (HS (SLEEP HOUR)))
  4. NAPROSYN [Concomitant]
     Active Substance: NAPROXEN
     Dosage: 500 MG, 2X/DAY
  5. METHOTREXATE SODIUM. [Concomitant]
     Active Substance: METHOTREXATE SODIUM
     Indication: RHEUMATOID ARTHRITIS
     Dosage: 7.5 MG (Q UNK)

REACTIONS (12)
  - Arthralgia [Unknown]
  - Purulent discharge [Not Recovered/Not Resolved]
  - Therapeutic product effect incomplete [Unknown]
  - Wound secretion [Recovered/Resolved]
  - Peripheral swelling [Recovering/Resolving]
  - Nasal congestion [Recovered/Resolved]
  - Epistaxis [Unknown]
  - Postoperative wound infection [Recovered/Resolved]
  - Dizziness [Not Recovered/Not Resolved]
  - Thermal burn [Unknown]
  - Gingival disorder [Unknown]
  - Nausea [Recovered/Resolved]

NARRATIVE: CASE EVENT DATE: 201701
